FAERS Safety Report 4638247-1 (Version None)
Quarter: 2005Q2

REPORT INFORMATION
  Report Type: 
  Country: None (occurrence: None)
  Receive Date: 20050418
  Receipt Date: 20050329
  Transmission Date: 20051028
  Serious: Yes (Other)
  Sender: FDA-Public Use
  Company Number: USA050394591

PATIENT
  Age: 17 Year
  Sex: Female

DRUGS (2)
  1. SYMBYAX [Suspect]
     Dates: start: 20050325, end: 20050326
  2. PROZAC [Suspect]

REACTIONS (1)
  - SYNCOPE [None]
